FAERS Safety Report 9967725 (Version 3)
Quarter: 2014Q2

REPORT INFORMATION
  Report Type: Spontaneous
  Country: BR (occurrence: BR)
  Receive Date: 20140306
  Receipt Date: 20140509
  Transmission Date: 20141212
  Serious: Yes (Other)
  Sender: FDA-Public Use
  Company Number: PHHY2014BR026094

PATIENT
  Sex: Female
  Weight: 70 kg

DRUGS (4)
  1. TEGRETOL [Suspect]
     Dosage: 0.5 DF, BID (200 MG)
     Route: 048
  2. TEGRETOL [Suspect]
     Dosage: 1 DF, BID (400 MG)
     Route: 048
  3. PURAN T4 [Concomitant]
     Indication: HYPOTHYROIDISM
     Dosage: 1 DF (100 UG) DAILY
     Route: 048
  4. MINERAL OIL EMULSION [Concomitant]
     Indication: GASTROINTESTINAL DISORDER
     Dosage: 1 SPOON DAILY
     Route: 048

REACTIONS (4)
  - Petit mal epilepsy [Not Recovered/Not Resolved]
  - Eye irritation [Recovered/Resolved]
  - Visual impairment [Not Recovered/Not Resolved]
  - Diplopia [Not Recovered/Not Resolved]
